FAERS Safety Report 9150479 (Version 4)
Quarter: 2013Q4

REPORT INFORMATION
  Report Type: Spontaneous
  Country: US (occurrence: None)
  Receive Date: 20130301
  Receipt Date: 20131211
  Transmission Date: 20140711
  Serious: Yes (Hospitalization, Other)
  Sender: FDA-Public Use
  Company Number: 2013US001175

PATIENT
  Age: 52 Year
  Sex: Male
  Weight: 71.7 kg

DRUGS (1)
  1. ICLUSIG [Suspect]
     Indication: ACUTE LYMPHOCYTIC LEUKAEMIA
     Route: 048
     Dates: end: 20130227

REACTIONS (7)
  - Fungal infection [None]
  - Local swelling [None]
  - Hyperaesthesia [None]
  - Pneumonia [None]
  - Hypoaesthesia [None]
  - Peripheral coldness [None]
  - Hypoaesthesia [None]
